FAERS Safety Report 9536443 (Version 2)
Quarter: 2013Q3

REPORT INFORMATION
  Report Type: Spontaneous
  Country: US (occurrence: US)
  Receive Date: 20130919
  Receipt Date: 20130919
  Transmission Date: 20140515
  Serious: Yes (Other)
  Sender: FDA-Public Use
  Company Number: US-UCBSA-086735

PATIENT
  Age: 30 Year
  Sex: Male

DRUGS (15)
  1. KEPPRA [Suspect]
     Indication: CONVULSION
     Dosage: 1000 MG
     Dates: start: 2011, end: 2012
  2. KEPPRA [Suspect]
     Indication: CONVULSION
     Dosage: 1000 MG
     Dates: start: 2012, end: 2012
  3. KEPPRA XR [Interacting]
     Indication: CONVULSION
     Dosage: DOSE: 2000 MG
     Dates: start: 2012, end: 2013
  4. KEPPRA XR [Interacting]
     Indication: CONVULSION
     Dosage: 500 MG IN MORNING AND 500 MG AT NIGHT
     Dates: start: 2013
  5. BUTRANS [Interacting]
     Indication: PAIN
     Dosage: 5 MCG PATCHES, 6 MONTHS AGO
  6. BUTRANS [Interacting]
     Indication: PAIN
     Dosage: PATCH, 10 MG AN HOUR, ONCE A WEEK
  7. ZOLOFT [Interacting]
     Dosage: 100 MG
  8. PERCOCET [Interacting]
     Dosage: 10/325
  9. PERCOCET [Interacting]
     Dosage: 325
  10. VALIUM [Interacting]
     Dosage: 5 MG
  11. TIZANIDINE [Interacting]
     Dosage: 4 MG
  12. CYMBALTA [Concomitant]
     Dosage: 50 MG IN MORNING
  13. LAMOTRIGINE [Concomitant]
     Dosage: 200 MG
  14. XANAX [Concomitant]
     Dosage: 1 MG
  15. ZANAFLEX [Concomitant]
     Dosage: 4 MG AT NIGHT

REACTIONS (8)
  - Intracranial pressure increased [Unknown]
  - Partial seizures [Unknown]
  - Drug interaction [Unknown]
  - Drug ineffective [Unknown]
  - Inappropriate schedule of drug administration [Unknown]
  - Brain neoplasm [Unknown]
  - Hemiplegia [Unknown]
  - Suicidal ideation [Recovered/Resolved]
